FAERS Safety Report 16007461 (Version 1)
Quarter: 2019Q1

REPORT INFORMATION
  Report Type: Spontaneous
  Country: US (occurrence: US)
  Receive Date: 20190226
  Receipt Date: 20190226
  Transmission Date: 20190418
  Serious: No
  Sender: FDA-Public Use
  Company Number: US-ASTRAZENECA-2019SE28216

PATIENT
  Sex: Male

DRUGS (1)
  1. SEROQUEL [Suspect]
     Active Substance: QUETIAPINE FUMARATE
     Route: 048

REACTIONS (9)
  - Withdrawal syndrome [Unknown]
  - Weight increased [Unknown]
  - Diabetes mellitus [Unknown]
  - Feeling hot [Unknown]
  - Tardive dyskinesia [Unknown]
  - Feeling cold [Unknown]
  - Fatigue [Unknown]
  - Panic attack [Unknown]
  - Blood cholesterol increased [Unknown]
